FAERS Safety Report 7242592-3 (Version None)
Quarter: 2010Q4

REPORT INFORMATION
  Report Type: 
  Country: None (occurrence: None)
  Receive Date: 20101130
  Receipt Date: 20100527
  Transmission Date: 20110411
  Serious: Yes (Other)
  Sender: FDA-Public Use
  Company Number: US201005007693

PATIENT
  Age: 64 Year
  Sex: Female
  Weight: 76.2 kg

DRUGS (12)
  1. BYETTA [Suspect]
     Indication: TYPE 2 DIABETES MELLITUS
     Dosage: 5 UG, 2/D, SUBCUTANEOUS, 10 UG, 2/D, SUBCUTANEOUS, 5 UG, 2/D, SUBCUTANEOUS
     Route: 058
     Dates: start: 20060101
  2. MOBIC [Concomitant]
  3. BEXTRA [Concomitant]
  4. PREVACID [Concomitant]
  5. ATACAND (CANDESARRTAN CILEXETIL) [Concomitant]
  6. HYDROCHLOROTHIAZIDE [Concomitant]
  7. VYTORIN [Concomitant]
  8. METFORMIN HCL [Concomitant]
  9. ALLEGRA-D/01413301/ (FEXOFENADNE, PSEUDOEPHEDRINE HYDROCHLORIDE) [Concomitant]
  10. METOPROLOL SUCCINATE [Concomitant]
  11. ASPIRIN [Concomitant]
  12. CLIMARA [Concomitant]

REACTIONS (17)
  - ABDOMINAL DISCOMFORT [None]
  - BLOOD ALKALINE PHOSPHATASE [None]
  - BLOOD CHOLESTEROL INCREASED [None]
  - BLOOD POTASSIUM INCREASED [None]
  - BLOOD PRESSURE INCREASED [None]
  - BLOOD TRIGLYCERIDES INCREASED [None]
  - BLOOD UREA INCREASED [None]
  - COLD SWEAT [None]
  - DIARRHOEA [None]
  - DYSURIA [None]
  - FATIGUE [None]
  - HYPERHIDROSIS [None]
  - JOINT SWELLING [None]
  - OEDEMA PERIPHERAL [None]
  - RENAL FAILURE CHRONIC [None]
  - VOMITING [None]
  - WEIGHT DECREASED [None]
